FAERS Safety Report 23279996 (Version 10)
Quarter: 2025Q1

REPORT INFORMATION
  Report Type: Spontaneous
  Country: CO (occurrence: CO)
  Receive Date: 20231210
  Receipt Date: 20250306
  Transmission Date: 20250408
  Serious: Yes (Disabling)
  Sender: SANDOZ
  Company Number: CO-002147023-NVSC2022CO222376

PATIENT
  Age: 74 Year
  Sex: Female
  Weight: 58 kg

DRUGS (9)
  1. FULVESTRANT [Suspect]
     Active Substance: FULVESTRANT
     Indication: Product used for unknown indication
     Dosage: 1 DF, QMO (EVERY 28 DAYS)
     Route: 030
  2. FULVESTRANT [Suspect]
     Active Substance: FULVESTRANT
     Route: 065
     Dates: end: 202502
  3. KISQALI [Suspect]
     Active Substance: RIBOCICLIB
     Indication: Hormone receptor positive HER2 negative breast cancer
     Dosage: 600 MG, QD
     Route: 048
     Dates: start: 20220510
  4. KISQALI [Suspect]
     Active Substance: RIBOCICLIB
     Dosage: 600 MG, QD
     Route: 048
  5. KISQALI [Suspect]
     Active Substance: RIBOCICLIB
     Route: 048
  6. KISQALI [Suspect]
     Active Substance: RIBOCICLIB
     Dosage: 600 MG, QD
     Route: 048
     Dates: start: 2022, end: 202502
  7. KISQALI [Suspect]
     Active Substance: RIBOCICLIB
     Indication: Breast cancer metastatic
     Dosage: 600 MG, Q3W
     Route: 048
  8. LETROZOLE [Suspect]
     Active Substance: LETROZOLE
     Indication: Product used for unknown indication
     Dosage: 2 DF, QD (2 DOSAGE FORM, QD)
     Route: 065
  9. LOSARTAN [Concomitant]
     Active Substance: LOSARTAN
     Indication: Product used for unknown indication
     Dosage: 1 DF, QD (TABLET)
     Route: 065

REACTIONS (36)
  - Ill-defined disorder [Unknown]
  - Gastritis [Unknown]
  - Rhinorrhoea [Unknown]
  - Gait inability [Unknown]
  - Balance disorder [Unknown]
  - Fear [Unknown]
  - Renal disorder [Unknown]
  - Liver disorder [Unknown]
  - Ageusia [Unknown]
  - Salivary hypersecretion [Unknown]
  - Gastrooesophageal reflux disease [Unknown]
  - Dyspepsia [Unknown]
  - Drug intolerance [Recovering/Resolving]
  - Alopecia [Not Recovered/Not Resolved]
  - Onychomadesis [Unknown]
  - Injection site cyst [Unknown]
  - Madarosis [Unknown]
  - Stress [Unknown]
  - Visual impairment [Not Recovered/Not Resolved]
  - Viral infection [Unknown]
  - Malaise [Not Recovered/Not Resolved]
  - Blister [Unknown]
  - Wound [Unknown]
  - Feeling abnormal [Not Recovered/Not Resolved]
  - Pain [Unknown]
  - Anosmia [Unknown]
  - Abdominal pain upper [Not Recovered/Not Resolved]
  - Cough [Unknown]
  - Neuralgia [Unknown]
  - Decreased appetite [Unknown]
  - Injection site pain [Not Recovered/Not Resolved]
  - Influenza [Unknown]
  - Pain in extremity [Unknown]
  - Nausea [Unknown]
  - Product dispensing error [Unknown]
  - Product use issue [Unknown]

NARRATIVE: CASE EVENT DATE: 20240201
